FAERS Safety Report 16223211 (Version 1)
Quarter: 2019Q2

REPORT INFORMATION
  Report Type: Spontaneous
  Country: GB (occurrence: GB)
  Receive Date: 20190422
  Receipt Date: 20190422
  Transmission Date: 20190711
  Serious: Yes (Other)
  Sender: FDA-Public Use
  Company Number: GB-SA-2019SA108671

PATIENT
  Age: 68 Year
  Sex: Female
  Weight: 77 kg

DRUGS (2)
  1. ADCAL D3 [Concomitant]
     Active Substance: CALCIUM CARBONATE\CHOLECALCIFEROL
  2. DUPILUMAB [Suspect]
     Active Substance: DUPILUMAB
     Indication: DERMATITIS ATOPIC
     Route: 058
     Dates: start: 20180801, end: 20181101

REACTIONS (4)
  - Arthralgia [Recovering/Resolving]
  - Enthesopathy [Recovering/Resolving]
  - Arthritis [Recovering/Resolving]
  - Epicondylitis [Recovering/Resolving]

NARRATIVE: CASE EVENT DATE: 20180915
